FAERS Safety Report 6672754-5 (Version None)
Quarter: 2010Q2

REPORT INFORMATION
  Report Type: 
  Country: None (occurrence: None)
  Receive Date: 20100408
  Receipt Date: 20100406
  Transmission Date: 20101027
  Serious: Yes (Other)
  Sender: FDA-Public Use
  Company Number: JP-PFIZER INC-2010043154

PATIENT
  Age: 84 Year
  Sex: Male

DRUGS (9)
  1. CELECOX [Suspect]
     Dosage: 200 MG/DAY
     Route: 048
     Dates: start: 20100224, end: 20100308
  2. DOGMATYL [Suspect]
     Dosage: 50  MG/DAY
     Route: 048
     Dates: start: 20100224
  3. SILECE [Concomitant]
     Dosage: UNK
     Route: 048
     Dates: start: 20100224
  4. TOLEDOMIN [Concomitant]
     Dosage: UNK
     Route: 048
  5. ALOSENN [Concomitant]
     Dosage: UNK
     Route: 048
     Dates: start: 20100224
  6. DAIKENTYUTO [Concomitant]
     Dosage: UNK
     Route: 048
     Dates: start: 20100224
  7. CANDESARTAN CILEXETIL [Concomitant]
     Dosage: UNK
     Route: 048
  8. ATELEC [Concomitant]
     Dosage: UNK
     Route: 048
     Dates: end: 20100308
  9. EPADEL [Concomitant]
     Dosage: UNK
     Route: 048

REACTIONS (2)
  - NEUTROPHIL COUNT DECREASED [None]
  - PLATELET COUNT DECREASED [None]
